FAERS Safety Report 10444866 (Version 4)
Quarter: 2014Q4

REPORT INFORMATION
  Report Type: Spontaneous
  Country: IT (occurrence: IT)
  Receive Date: 20140910
  Receipt Date: 20141202
  Transmission Date: 20150528
  Serious: Yes (Hospitalization, Other)
  Sender: FDA-Public Use
  Company Number: IT-009507513-1409ITA003848

PATIENT
  Age: 71 Year
  Sex: Female

DRUGS (5)
  1. MIRTAZAPINE. [Suspect]
     Active Substance: MIRTAZAPINE
     Indication: SUICIDAL IDEATION
     Dosage: TOTAL DAILY DOSE: 3600 MG ONCE, FREQUENCY: TOTAL
     Route: 048
     Dates: start: 20140830, end: 20140830
  2. DELORAZEPAM [Concomitant]
     Active Substance: DELORAZEPAM
     Dosage: SRENGTH: 1MG/ML, ORAL DROPS
     Route: 048
  3. AKINETON [Concomitant]
     Active Substance: BIPERIDEN HYDROCHLORIDE
     Dosage: UNK
     Route: 048
  4. ANAFRANIL [Concomitant]
     Active Substance: CLOMIPRAMINE HYDROCHLORIDE
     Dosage: UNK
     Route: 048
  5. ABILIFY [Concomitant]
     Active Substance: ARIPIPRAZOLE
     Dosage: UNK
     Route: 048

REACTIONS (5)
  - Respiratory failure [Recovered/Resolved]
  - Sopor [Recovered/Resolved]
  - Tachycardia [Recovered/Resolved]
  - Psychomotor hyperactivity [Recovered/Resolved]
  - Drug abuse [Recovered/Resolved]

NARRATIVE: CASE EVENT DATE: 20140830
